FAERS Safety Report 4987625-X (Version None)
Quarter: 2006Q2

REPORT INFORMATION
  Report Type: 
  Country: None (occurrence: None)
  Receive Date: 20060424
  Receipt Date: 20060412
  Transmission Date: 20061013
  Serious: Yes (Other)
  Sender: FDA-Public Use
  Company Number: US200604002265

PATIENT
  Age: 43 Year
  Sex: Male

DRUGS (3)
  1. ZYPREXA [Suspect]
     Indication: BIPOLAR DISORDER
     Dosage: ORAL
     Route: 048
  2. FLUOXETINE HCL [Concomitant]
  3. WELLBUTRIN [Concomitant]

REACTIONS (3)
  - MYCOSIS FUNGOIDES [None]
  - PHARMACEUTICAL PRODUCT COMPLAINT [None]
  - T-CELL LYMPHOMA [None]
